FAERS Safety Report 15635289 (Version 1)
Quarter: 2018Q4

REPORT INFORMATION
  Report Type: Spontaneous
  Country: CA (occurrence: CA)
  Receive Date: 20181120
  Receipt Date: 20181120
  Transmission Date: 20190205
  Serious: Yes (Other)
  Sender: FDA-Public Use
  Company Number: CA-ACCORD-092717

PATIENT
  Age: 31 Year
  Sex: Female

DRUGS (3)
  1. CISPLATIN. [Suspect]
     Active Substance: CISPLATIN
     Indication: OVARIAN GERM CELL ENDODERMAL SINUS TUMOUR STAGE III
     Dosage: ADJUVANT CHEMOTHERAPY
  2. ETOPOSIDE. [Suspect]
     Active Substance: ETOPOSIDE
     Indication: OVARIAN GERM CELL ENDODERMAL SINUS TUMOUR STAGE III
     Dosage: ADJUVANT CHEMOTHERAPY
  3. BLEOMYCIN [Suspect]
     Active Substance: BLEOMYCIN SULFATE
     Indication: OVARIAN GERM CELL ENDODERMAL SINUS TUMOUR STAGE III
     Dosage: ADJUVANT CHEMOTHERAPY

REACTIONS (10)
  - Headache [Unknown]
  - Vomiting [Unknown]
  - Tinnitus [Unknown]
  - Nausea [Unknown]
  - Dyspnoea [Unknown]
  - Diarrhoea [Unknown]
  - Extrapyramidal disorder [Unknown]
  - Neutropenia [Unknown]
  - Dizziness [Unknown]
  - Pancytopenia [Unknown]
